FAERS Safety Report 24335129 (Version 7)
Quarter: 2025Q3

REPORT INFORMATION
  Report Type: Spontaneous
  Country: US (occurrence: US)
  Receive Date: 20240918
  Receipt Date: 20250901
  Transmission Date: 20251021
  Serious: Yes (Hospitalization, Other)
  Sender: NOVARTIS
  Company Number: US-002147023-NVSC2024US186018

PATIENT
  Sex: Female

DRUGS (2)
  1. PROMACTA [Suspect]
     Active Substance: ELTROMBOPAG OLAMINE
     Indication: Aplastic anaemia
     Dosage: 150 MG, QD (TABLET)
     Route: 048
     Dates: start: 202105
  2. PROMACTA [Suspect]
     Active Substance: ELTROMBOPAG OLAMINE
     Indication: Aplastic anaemia

REACTIONS (5)
  - Diarrhoea [Recovering/Resolving]
  - Condition aggravated [Unknown]
  - Aplastic anaemia [Unknown]
  - Ocular icterus [Unknown]
  - Hepatic enzyme increased [Unknown]
